FAERS Safety Report 9033030 (Version 2)
Quarter: 2013Q1

REPORT INFORMATION
  Report Type: Spontaneous
  Country: CZ (occurrence: None)
  Receive Date: 20130110
  Receipt Date: 20130201
  Transmission Date: 20140127
  Serious: Yes (Other)
  Sender: FDA-Public Use
  Company Number: DSA_61789_2013

PATIENT
  Age: 58 Year
  Sex: Male

DRUGS (4)
  1. FLUOROURACIL (FLUOROURACIL) [Suspect]
     Indication: ADENOCARCINOMA
     Dosage: DF
     Dates: start: 201202, end: 201208
  2. OXALIPLATIN (OXALIPLATIN) [Suspect]
     Indication: ADENOCARCINOMA
     Dosage: DF
     Dates: start: 201202, end: 2012
  3. LEUCOVORIN /00566701/ (LEUCOVORIN-FOLINIC ACID) [Suspect]
     Indication: ADENOCARCINOMA
     Dosage: DF
     Dates: start: 201202, end: 201208
  4. CETUXIMAB [Suspect]
     Indication: ADENOCARCINOMA
     Dosage: DF
     Dates: start: 201202, end: 201208

REACTIONS (2)
  - Neurotoxicity [None]
  - Skin toxicity [None]
